FAERS Safety Report 6736410-7 (Version None)
Quarter: 2010Q2

REPORT INFORMATION
  Report Type: 
  Country: None (occurrence: None)
  Receive Date: 20100521
  Receipt Date: 20100513
  Transmission Date: 20101027
  Serious: Yes (Other)
  Sender: FDA-Public Use
  Company Number: JP-MERCK-1003USA02528

PATIENT
  Age: 84 Year
  Sex: Female

DRUGS (12)
  1. FOSAMAX [Suspect]
     Indication: OSTEOPOROSIS
     Route: 048
     Dates: start: 20080423, end: 20100310
  2. DISOPYRAMIDE [Concomitant]
     Indication: ARRHYTHMIA
     Route: 048
  3. MEDIPEACE [Concomitant]
     Route: 048
  4. ISOPIT [Concomitant]
     Route: 061
  5. LOXONIN [Concomitant]
     Indication: BACK PAIN
     Route: 061
  6. OMEPRAL [Concomitant]
     Route: 048
  7. LIVALO [Concomitant]
     Indication: HYPERLIPIDAEMIA
     Route: 048
  8. MUCOSTA [Concomitant]
     Indication: GASTRITIS
     Route: 048
  9. ACTONEL [Suspect]
     Indication: OSTEOPOROSIS
     Route: 048
     Dates: start: 20030101, end: 20080422
  10. SODIUM BICARBONATE [Concomitant]
     Route: 048
  11. URSO 250 [Concomitant]
     Indication: BILIARY CIRRHOSIS
     Route: 048
  12. MYSLEE [Concomitant]
     Indication: INSOMNIA
     Route: 048

REACTIONS (1)
  - OSTEOMYELITIS [None]
